FAERS Safety Report 4696011-1 (Version None)
Quarter: 2005Q2

REPORT INFORMATION
  Report Type: 
  Country: None (occurrence: None)
  Receive Date: 20050621
  Receipt Date: 20010620
  Transmission Date: 20051028
  Serious: Yes (Hospitalization)
  Sender: FDA-Public Use
  Company Number: FR-GLAXOSMITHKLINE-B0251021A

PATIENT
  Age: 52 Year
  Sex: Female

DRUGS (1)
  1. AUGMENTIN '125' [Suspect]
     Indication: TOOTH ABSCESS
     Dosage: 500MG THREE TIMES PER DAY
     Route: 048
     Dates: start: 20010504, end: 20010514

REACTIONS (2)
  - AGRANULOCYTOSIS [None]
  - FATIGUE [None]
